FAERS Safety Report 24104226 (Version 1)
Quarter: 2024Q3

REPORT INFORMATION
  Report Type: Spontaneous
  Country: SE (occurrence: SE)
  Receive Date: 20240717
  Receipt Date: 20240717
  Transmission Date: 20241017
  Serious: Yes (Other)
  Sender: ACCORD
  Company Number: None

PATIENT
  Age: 47 Year
  Sex: Female
  Weight: 75 kg

DRUGS (2)
  1. AMLODIPINE BESYLATE [Suspect]
     Active Substance: AMLODIPINE BESYLATE
     Indication: Hypertension
     Dosage: 1 TABLET 1 TIME PER DAY
     Dates: start: 20211209, end: 20230217
  2. ENALAPRIL MALEATE [Concomitant]
     Active Substance: ENALAPRIL MALEATE
     Dosage: 1 TABLET ONE TIME PER DAY
     Dates: start: 20220309

REACTIONS (2)
  - Condition aggravated [Recovering/Resolving]
  - Periodontitis [Recovering/Resolving]

NARRATIVE: CASE EVENT DATE: 20230201
